FAERS Safety Report 24043801 (Version 1)
Quarter: 2024Q3

REPORT INFORMATION
  Report Type: Spontaneous
  Country: GB (occurrence: GB)
  Receive Date: 20240703
  Receipt Date: 20240703
  Transmission Date: 20241016
  Serious: Yes (Life-Threatening)
  Sender: AUROBINDO
  Company Number: GB-MHRA-TPP11078819C11285570YC1719247254927

PATIENT
  Age: 82 Year
  Sex: Female
  Weight: 56 kg

DRUGS (8)
  1. PREGABALIN [Suspect]
     Active Substance: PREGABALIN
     Indication: Ill-defined disorder
     Dosage: UNK
     Route: 065
     Dates: start: 20240624
  2. CYCLIZINE [Concomitant]
     Active Substance: CYCLIZINE
     Indication: Ill-defined disorder
     Dosage: 1 DOSAGE FORM, 3 TIMES A DAY (WHEN REQUIRED )
     Route: 065
     Dates: start: 20240410, end: 20240424
  3. AMOXICILLIN [Concomitant]
     Active Substance: AMOXICILLIN
     Indication: Ill-defined disorder
     Dosage: 1 DOSAGE FORM (UTI (RECURRENT) 2ND CHOICE: TAKE ONE CAPSULE AS A SINGLE DOSE WHEN EXPOSED TO A TRIGG
     Route: 065
     Dates: start: 20240429, end: 20240502
  4. POLYETHYLENE GLYCOLS [Concomitant]
     Active Substance: POLYETHYLENE GLYCOLS
     Indication: Ill-defined disorder
     Dosage: TAKE THE CONTENTS OF ONE TO THREE SACHETS, DAILY
     Route: 065
     Dates: start: 20240429, end: 20240509
  5. PREGABALIN [Concomitant]
     Active Substance: PREGABALIN
     Indication: Ill-defined disorder
     Dosage: 1 DOSAGE FORM, TWO TIMES A DAY
     Route: 065
     Dates: start: 20240530
  6. BUPRENORPHINE [Concomitant]
     Active Substance: BUPRENORPHINE
     Indication: Ill-defined disorder
     Dosage: 1 DOSAGE FORM, EVERY WEEK
     Route: 065
     Dates: start: 20240202
  7. LOSARTAN [Concomitant]
     Active Substance: LOSARTAN
     Indication: Ill-defined disorder
     Dosage: 1 DOSAGE FORM, DAILY (TO LOW BLOOD PRESSURE)
     Route: 065
     Dates: start: 20240408
  8. ROSUVASTATIN [Concomitant]
     Active Substance: ROSUVASTATIN
     Indication: Ill-defined disorder
     Dosage: 1 DOSAGE FORM, DAILY (TO LOWER CHOLESTEROL)
     Route: 065
     Dates: start: 20240429

REACTIONS (1)
  - Mouth swelling [Recovered/Resolved]

NARRATIVE: CASE EVENT DATE: 20240624
